FAERS Safety Report 24371444 (Version 1)
Quarter: 2024Q3

REPORT INFORMATION
  Report Type: Spontaneous
  Country: US (occurrence: None)
  Receive Date: 20240926
  Receipt Date: 20240926
  Transmission Date: 20241017
  Serious: No
  Sender: Public
  Company Number: None

PATIENT
  Age: 67 Year
  Sex: Female

DRUGS (1)
  1. GAMMAGARD S/D [Suspect]
     Active Substance: HUMAN IMMUNOGLOBULIN G
     Indication: Stiff person syndrome
     Dosage: OTHER FREQUENCY : Q10WEEKS;?
     Route: 042
     Dates: start: 20240813

REACTIONS (4)
  - Incorrect dose administered [None]
  - Product closure issue [None]
  - Wrong technique in device usage process [None]
  - Product compounding quality issue [None]

NARRATIVE: CASE EVENT DATE: 20240813
